FAERS Safety Report 13831545 (Version 2)
Quarter: 2017Q3

REPORT INFORMATION
  Report Type: Spontaneous
  Country: US (occurrence: US)
  Receive Date: 20170803
  Receipt Date: 20170818
  Transmission Date: 20171127
  Serious: Yes (Life-Threatening, Hospitalization, Other)
  Sender: FDA-Public Use
  Company Number: US-DRREDDYS-USA/USA/17/0092379

PATIENT
  Age: 32 Year
  Sex: Male

DRUGS (2)
  1. FAMOTIDINE. [Suspect]
     Active Substance: FAMOTIDINE
     Indication: PRODUCT USED FOR UNKNOWN INDICATION
     Route: 065
  2. LOPERAMIDE [Suspect]
     Active Substance: LOPERAMIDE
     Indication: PRODUCT USED FOR UNKNOWN INDICATION
     Dosage: MAXIMUM RECOMMENDED DOSE 16 MG/DAY
     Route: 065

REACTIONS (11)
  - Drug abuse [Unknown]
  - Toxicity to various agents [Unknown]
  - Electrocardiogram QT prolonged [Recovered/Resolved]
  - Defect conduction intraventricular [Recovered/Resolved]
  - Palpitations [Unknown]
  - Ventricular tachycardia [Recovered/Resolved]
  - Overdose [Unknown]
  - Syncope [Unknown]
  - Drug level increased [Unknown]
  - Inhibitory drug interaction [Unknown]
  - Atrioventricular block first degree [Recovered/Resolved]
